FAERS Safety Report 14660659 (Version 3)
Quarter: 2018Q3

REPORT INFORMATION
  Report Type: Spontaneous
  Country: US (occurrence: US)
  Receive Date: 20180320
  Receipt Date: 20180817
  Transmission Date: 20181010
  Serious: Yes (Hospitalization, Disabling)
  Sender: FDA-Public Use
  Company Number: US-JNJFOC-20180322642

PATIENT
  Age: 49 Year
  Sex: Male
  Weight: 111.4 kg

DRUGS (1)
  1. INVOKAMET [Suspect]
     Active Substance: CANAGLIFLOZIN\METFORMIN HYDROCHLORIDE
     Indication: TYPE 2 DIABETES MELLITUS
     Dosage: 150 MG?1000 MG
     Route: 048
     Dates: start: 20150317

REACTIONS (4)
  - Leg amputation [Unknown]
  - Staphylococcal infection [Unknown]
  - Gas gangrene [Unknown]
  - Osteomyelitis acute [Unknown]

NARRATIVE: CASE EVENT DATE: 201607
